FAERS Safety Report 19846675 (Version 1)
Quarter: 2021Q3

REPORT INFORMATION
  Report Type: Spontaneous
  Country: DE (occurrence: DE)
  Receive Date: 20210917
  Receipt Date: 20210917
  Transmission Date: 20211014
  Serious: Yes (Death, Hospitalization)
  Sender: FDA-Public Use
  Company Number: DE-TEVA-2021-DE-1951966

PATIENT
  Age: 90 Year
  Sex: Female

DRUGS (12)
  1. HYDROCHLOROTHIAZID [Suspect]
     Active Substance: HYDROCHLOROTHIAZIDE
     Dosage: 25 MG
  2. COLECALCIFEROL (VITAMIN D) [Concomitant]
     Active Substance: CHOLECALCIFEROL
     Dosage: 20000 IE
  3. TORASEMID [Suspect]
     Active Substance: TORSEMIDE
     Dosage: 10|5 MG
  4. OMEPRAZOL [Concomitant]
     Active Substance: OMEPRAZOLE
     Dosage: 20 MG
  5. RAMIPRIL. [Concomitant]
     Active Substance: RAMIPRIL
     Dosage: 5 MG
  6. SITAGLIPTIN [Concomitant]
     Active Substance: SITAGLIPTIN
     Dosage: 100 MG
  7. SIMVASTATIN. [Concomitant]
     Active Substance: SIMVASTATIN
     Dosage: 40 MG
  8. BISOPROLOL [Concomitant]
     Active Substance: BISOPROLOL
     Dosage: 5 MG
  9. INSULIN DETEMIR [Concomitant]
     Active Substance: INSULIN DETEMIR
  10. METFORMIN [Concomitant]
     Active Substance: METFORMIN HYDROCHLORIDE
     Dosage: 1 G
  11. AMLODIPIN [Concomitant]
     Active Substance: AMLODIPINE BESYLATE
     Dosage: 2.5 MG
  12. GLIMEPIRID [Concomitant]
     Active Substance: GLIMEPIRIDE
     Dosage: 2 MG

REACTIONS (15)
  - Systemic infection [Unknown]
  - Disorientation [Unknown]
  - Electrocardiogram abnormal [Unknown]
  - Diarrhoea [Unknown]
  - General physical health deterioration [Unknown]
  - Hypotension [Unknown]
  - Hyperglycaemia [Unknown]
  - Pyrexia [Unknown]
  - Headache [Unknown]
  - Renal impairment [Unknown]
  - Hyponatraemia [Unknown]
  - Vomiting [Unknown]
  - Weight increased [Unknown]
  - Coronavirus test positive [Unknown]
  - Fatigue [Unknown]
